FAERS Safety Report 9827334 (Version 1)
Quarter: 2013Q4

REPORT INFORMATION
  Report Type: Spontaneous
  Country: US (occurrence: None)
  Receive Date: 20131223
  Receipt Date: 20131223
  Transmission Date: 20140711
  Serious: No
  Sender: FDA-Public Use
  Company Number: 219378LEO

PATIENT
  Sex: Female

DRUGS (1)
  1. PICATO (INGENOL MEBUTATE) (0.015 %) [Suspect]
     Indication: PRECANCEROUS CELLS PRESENT
     Route: 061
     Dates: start: 20121018, end: 20121020

REACTIONS (6)
  - Burning sensation [None]
  - Skin exfoliation [None]
  - Erythema [None]
  - Application site exfoliation [None]
  - Off label use [None]
  - Application site pain [None]
